FAERS Safety Report 9673605 (Version 2)
Quarter: 2013Q4

REPORT INFORMATION
  Report Type: Spontaneous
  Country: US (occurrence: US)
  Receive Date: 20131106
  Receipt Date: 20131106
  Transmission Date: 20140711
  Serious: Yes (Other)
  Sender: FDA-Public Use
  Company Number: US-AMGEN-USASP2013068812

PATIENT
  Age: 56 Year
  Sex: Female
  Weight: 137.8 kg

DRUGS (5)
  1. ENBREL [Suspect]
     Indication: RHEUMATOID ARTHRITIS
     Dosage: 50 MG, WEEKLY
     Route: 058
     Dates: start: 20130815
  2. LISINOPRIL AND HYDROCHLORTIAZIDE [Concomitant]
     Indication: HYPERTENSION
     Dosage: 10 OR 12.5, UNK, QD
     Route: 048
  3. PRAVASTATIN [Concomitant]
     Indication: HYPERLIPIDAEMIA
     Dosage: 40 MG, QDAY
     Route: 048
  4. NEXIUM                             /01479302/ [Concomitant]
     Indication: DYSPEPSIA
     Dosage: 40 MG, PRN
     Route: 048
     Dates: start: 201212
  5. METHOTREXATE [Concomitant]
     Indication: RHEUMATOID ARTHRITIS
     Dosage: 20 MG, WEEKLY
     Route: 048
     Dates: start: 201209

REACTIONS (4)
  - Cardiac failure congestive [Unknown]
  - Oedema peripheral [Recovering/Resolving]
  - Dyspnoea [Recovering/Resolving]
  - Arthralgia [Unknown]
